FAERS Safety Report 17291499 (Version 1)
Quarter: 2020Q1

REPORT INFORMATION
  Report Type: Report from Study
  Country: US (occurrence: US)
  Receive Date: 20200121
  Receipt Date: 20200121
  Transmission Date: 20200409
  Serious: Yes (Other)
  Sender: FDA-Public Use
  Company Number: US-BAYER-2019-183511

PATIENT
  Age: 71 Year
  Sex: Male

DRUGS (4)
  1. NEXAVAR [Suspect]
     Active Substance: SORAFENIB
     Indication: HEPATOCELLULAR CARCINOMA
     Dosage: 400 MG, BID
     Route: 048
     Dates: start: 20191002
  2. OXYCODONE [Concomitant]
     Active Substance: OXYCODONE
     Indication: PRODUCT USED FOR UNKNOWN INDICATION
  3. PROMETHAZINE [Concomitant]
     Active Substance: PROMETHAZINE HYDROCHLORIDE
     Dosage: UNK
  4. MUPIROCIN. [Concomitant]
     Active Substance: MUPIROCIN

REACTIONS (15)
  - Fluid retention [Not Recovered/Not Resolved]
  - Headache [Not Recovered/Not Resolved]
  - Dysphonia [None]
  - Joint swelling [None]
  - Blister [None]
  - Alopecia [None]
  - Diarrhoea [None]
  - Rash [Not Recovered/Not Resolved]
  - Adverse drug reaction [None]
  - Vomiting [None]
  - Nausea [Not Recovered/Not Resolved]
  - Pain [Not Recovered/Not Resolved]
  - Blister [Unknown]
  - Weight decreased [None]
  - Confusional state [None]

NARRATIVE: CASE EVENT DATE: 201910
